FAERS Safety Report 14666658 (Version 7)
Quarter: 2020Q3

REPORT INFORMATION
  Report Type: Spontaneous
  Country: FR (occurrence: FR)
  Receive Date: 20180322
  Receipt Date: 20200923
  Transmission Date: 20201102
  Serious: Yes (Death, Hospitalization, Other)
  Sender: FDA-Public Use
  Company Number: FR-009507513-1803FRA007658

PATIENT
  Age: 52 Year
  Sex: Female

DRUGS (3)
  1. PEMBROLIZUMAB. [Suspect]
     Active Substance: PEMBROLIZUMAB
     Indication: METASTATIC MALIGNANT MELANOMA
     Dosage: 200 MG, Q3W EIGHT CYCLES PEMBRO FOLLOWED BY 1 CYCLE IPI
     Route: 042
  2. IPILIMUMAB [Suspect]
     Active Substance: IPILIMUMAB
     Dosage: 3 MILLIGRAM/KILOGRAM, Q3W
  3. PEMBROLIZUMAB. [Suspect]
     Active Substance: PEMBROLIZUMAB
     Dosage: 2 MILLIGRAM/KILOGRAM, Q3W

REACTIONS (3)
  - Immune-mediated hepatitis [Unknown]
  - Haemophagocytic lymphohistiocytosis [Fatal]
  - Pyrexia [Unknown]
